FAERS Safety Report 5159184-2 (Version None)
Quarter: 2006Q4

REPORT INFORMATION
  Report Type: 
  Country: None (occurrence: None)
  Receive Date: 20061128
  Receipt Date: 20060912
  Transmission Date: 20070319
  Serious: Yes (Hospitalization)
  Sender: FDA-Public Use
  Company Number: US-AMGEN-US193688

PATIENT
  Sex: Male
  Weight: 78 kg

DRUGS (4)
  1. ENBREL [Suspect]
     Indication: PSORIATIC ARTHROPATHY
     Route: 058
     Dates: start: 20041123, end: 20060328
  2. SORIATANE [Concomitant]
     Dates: start: 20010101
  3. METHOTREXATE [Concomitant]
     Dates: start: 19960101, end: 20060328
  4. FLUCONAZOLE [Concomitant]
     Dates: start: 19960101

REACTIONS (6)
  - CHILLS [None]
  - CHOLANGITIS [None]
  - GRANULOMATOUS LIVER DISEASE [None]
  - HISTOPLASMOSIS DISSEMINATED [None]
  - LIVER FUNCTION TEST ABNORMAL [None]
  - PYREXIA [None]
